FAERS Safety Report 4841727-7 (Version None)
Quarter: 2005Q4

REPORT INFORMATION
  Report Type: 
  Country: None (occurrence: None)
  Receive Date: 20051125
  Receipt Date: 20051107
  Transmission Date: 20060501
  Serious: Yes (Death)
  Sender: FDA-Public Use
  Company Number: 2005-BP-19703RO

PATIENT
  Age: 44 Year

DRUGS (3)
  1. LITHIUM CARBONATE [Suspect]
  2. PROPRANOLOL [Suspect]
  3. BUPROPION (BURPROPION) [Suspect]

REACTIONS (2)
  - MULTIPLE DRUG OVERDOSE [None]
  - SUICIDE ATTEMPT [None]
